FAERS Safety Report 6823680-X (Version None)
Quarter: 2010Q3

REPORT INFORMATION
  Report Type: 
  Country: None (occurrence: None)
  Receive Date: 20100708
  Receipt Date: 20060818
  Transmission Date: 20110219
  Serious: No
  Sender: FDA-Public Use
  Company Number: US-PFIZER INC-2006102768

PATIENT
  Sex: Female
  Weight: 120.2 kg

DRUGS (8)
  1. CHANTIX [Suspect]
     Indication: SMOKING CESSATION THERAPY
     Dates: start: 20060813
  2. DOXEPIN HCL [Concomitant]
  3. LEXAPRO [Concomitant]
  4. XANAX [Concomitant]
  5. TIAZAC [Concomitant]
  6. SYNTHROID [Concomitant]
  7. LESCOL [Concomitant]
  8. ADVAIR DISKUS 100/50 [Concomitant]

REACTIONS (6)
  - FEELING ABNORMAL [None]
  - INSOMNIA [None]
  - IRRITABILITY [None]
  - PANIC REACTION [None]
  - PSYCHIATRIC SYMPTOM [None]
  - RESTLESSNESS [None]
